FAERS Safety Report 16434500 (Version 1)
Quarter: 2019Q2

REPORT INFORMATION
  Report Type: Spontaneous
  Country: US (occurrence: US)
  Receive Date: 20190614
  Receipt Date: 20190614
  Transmission Date: 20190711
  Serious: No
  Sender: FDA-Public Use
  Company Number: US-JNJFOC-20170215984

PATIENT
  Age: 86 Year
  Sex: Female
  Weight: 58.97 kg

DRUGS (4)
  1. HCTZ [Concomitant]
     Active Substance: HYDROCHLOROTHIAZIDE
     Indication: HYPERTENSION
     Dosage: IN THE MORNING AND AT NIGHT
     Route: 048
  2. FENTANYL. [Suspect]
     Active Substance: FENTANYL
     Indication: UPPER LIMB FRACTURE
     Route: 062
     Dates: start: 20060727, end: 200608
  3. FENTANYL. [Suspect]
     Active Substance: FENTANYL
     Indication: UPPER LIMB FRACTURE
     Route: 062
     Dates: start: 200608
  4. PRINIVIL [Concomitant]
     Active Substance: LISINOPRIL
     Indication: HYPERTENSION
     Dosage: IN THE MORNING AND AT NIGHT
     Route: 048

REACTIONS (1)
  - Pain [Recovered/Resolved]

NARRATIVE: CASE EVENT DATE: 200608
